FAERS Safety Report 11913060 (Version 3)
Quarter: 2016Q1

REPORT INFORMATION
  Report Type: Report from Study
  Country: BR (occurrence: BR)
  Receive Date: 20160113
  Receipt Date: 20160219
  Transmission Date: 20160526
  Serious: Yes (Other)
  Sender: FDA-Public Use
  Company Number: PHHY2016BR001820

PATIENT
  Sex: Male
  Weight: 78 kg

DRUGS (5)
  1. DIOVAN AMLO FIX [Suspect]
     Active Substance: AMLODIPINE\VALSARTAN
     Dosage: 1 DF (AMLODIPINE 10 MG AND VALSARTAN 320 MG), QD
     Route: 048
  2. JANUMET [Concomitant]
     Active Substance: METFORMIN HYDROCHLORIDE\SITAGLIPTIN PHOSPHATE
     Indication: DIABETES MELLITUS
     Dosage: 2 DF, QD
     Route: 048
  3. GLIBENCLAMIDE [Concomitant]
     Active Substance: GLYBURIDE
     Indication: DIABETES MELLITUS
     Dosage: 1 DF, QD
     Route: 048
  4. HYDROCHLOROTHIAZIDE. [Concomitant]
     Active Substance: HYDROCHLOROTHIAZIDE
     Indication: HYPERTENSION
     Dosage: 1 DF, QD
     Route: 048
  5. DIOVAN AMLO FIX [Suspect]
     Active Substance: AMLODIPINE\VALSARTAN
     Indication: HYPERTENSION
     Dosage: 1 DF (AMLODIPINE 5 MG AND VALSARTAN 320 MG), QD (FROM 5 YEARS AGO TO 2 MONTHS AGO)
     Route: 048

REACTIONS (5)
  - Blood pressure increased [Recovering/Resolving]
  - Flavivirus infection [Unknown]
  - Blood pressure inadequately controlled [Not Recovered/Not Resolved]
  - Expired product administered [Unknown]
  - Dengue fever [Unknown]
